FAERS Safety Report 14998954 (Version 3)
Quarter: 2018Q3

REPORT INFORMATION
  Report Type: Spontaneous
  Country: DE (occurrence: DE)
  Receive Date: 20180612
  Receipt Date: 20180706
  Transmission Date: 20181010
  Serious: No
  Sender: FDA-Public Use
  Company Number: DE-009507513-1806DEU004207

PATIENT
  Age: 75 Year
  Sex: Male

DRUGS (3)
  1. FOSAMAX [Suspect]
     Active Substance: ALENDRONATE SODIUM
     Indication: OSTEOPENIA
     Dosage: ONCE WEEKLY
     Route: 048
  2. CALCIMAGON [Suspect]
     Active Substance: CALCIUM
     Dosage: UNK
  3. PROPECIA [Concomitant]
     Active Substance: FINASTERIDE
     Indication: ALOPECIA
     Dosage: 1 TABLET, QD
     Route: 048
     Dates: start: 1998

REACTIONS (2)
  - Drug ineffective [Not Recovered/Not Resolved]
  - Osteopenia [Not Recovered/Not Resolved]

NARRATIVE: CASE EVENT DATE: 20180531
